FAERS Safety Report 18241077 (Version 1)
Quarter: 2020Q3

REPORT INFORMATION
  Report Type: Spontaneous
  Country: US (occurrence: US)
  Receive Date: 20200907
  Receipt Date: 20200907
  Transmission Date: 20201103
  Serious: Yes (Death)
  Sender: FDA-Public Use
  Company Number: None

PATIENT
  Age: 80 Year
  Sex: Female

DRUGS (15)
  1. SEROQUEL [Concomitant]
     Active Substance: QUETIAPINE FUMARATE
  2. CEFEPIME [Concomitant]
     Active Substance: CEFEPIME HYDROCHLORIDE
  3. CEFTRIAXONE. [Concomitant]
     Active Substance: CEFTRIAXONE
  4. METOPROLOL. [Concomitant]
     Active Substance: METOPROLOL
  5. DILTIAZEM. [Concomitant]
     Active Substance: DILTIAZEM
  6. MORPHINE [Concomitant]
     Active Substance: MORPHINE
  7. GABAPENTIN. [Concomitant]
     Active Substance: GABAPENTIN
  8. INSULIN [Concomitant]
     Active Substance: INSULIN NOS
  9. VANCOMYCIN [Concomitant]
     Active Substance: VANCOMYCIN
  10. AMIODARONE [Concomitant]
     Active Substance: AMIODARONE
  11. DEXAMETHASONE. [Concomitant]
     Active Substance: DEXAMETHASONE
  12. LOVENOX [Concomitant]
     Active Substance: ENOXAPARIN SODIUM
  13. VITAMIN C [Concomitant]
     Active Substance: ASCORBIC ACID
  14. LASIX [Concomitant]
     Active Substance: FUROSEMIDE
  15. REMDESIVIR. [Suspect]
     Active Substance: REMDESIVIR
     Dates: start: 20200826, end: 20200830

REACTIONS (4)
  - Condition aggravated [None]
  - Hospice care [None]
  - Hypoxia [None]
  - Acute respiratory failure [None]

NARRATIVE: CASE EVENT DATE: 20200903
